FAERS Safety Report 8198661-7 (Version None)
Quarter: 2012Q1

REPORT INFORMATION
  Report Type: 
  Country: None (occurrence: None)
  Receive Date: 20120307
  Receipt Date: 20120227
  Transmission Date: 20120608
  Serious: Yes (Other)
  Sender: FDA-Public Use
  Company Number: DSA_55262_2012

PATIENT
  Sex: Female

DRUGS (1)
  1. XENAZINE [Suspect]
     Indication: HUNTINGTON'S DISEASE
     Dosage: 12.5 MG, 2 1/2 TABLETS DAILY, ORAL
     Route: 048
     Dates: start: 20100901

REACTIONS (4)
  - INTENTIONAL SELF-INJURY [None]
  - TIC [None]
  - CONVULSION [None]
  - CRYING [None]
